FAERS Safety Report 4490196-8 (Version None)
Quarter: 2004Q4

REPORT INFORMATION
  Report Type: 
  Country: None (occurrence: None)
  Receive Date: 20041027
  Receipt Date: 20041014
  Transmission Date: 20050328
  Serious: Yes (Death)
  Sender: FDA-Public Use
  Company Number: 2004079238

PATIENT
  Sex: 0

DRUGS (3)
  1. GEODON [Suspect]
     Indication: ILL-DEFINED DISORDER
  2. OLANZAPINE [Suspect]
     Indication: ILL-DEFINED DISORDER
  3. DRUG UNSPECIFIED [Suspect]

REACTIONS (1)
  - DRUG ABUSER [None]
